FAERS Safety Report 6171268-9 (Version None)
Quarter: 2009Q2

REPORT INFORMATION
  Report Type: 
  Country: None (occurrence: None)
  Receive Date: 20090428
  Receipt Date: 20090428
  Transmission Date: 20091009
  Serious: Yes (Life-Threatening, Hospitalization, Disabling, Other)
  Sender: FDA-Public Use
  Company Number: None

PATIENT
  Sex: Male
  Weight: 49.8957 kg

DRUGS (1)
  1. HALDOL [Suspect]
     Indication: SCHIZOPHRENIA
     Dates: start: 20090420, end: 20090424

REACTIONS (5)
  - BALANCE DISORDER [None]
  - CONTUSION [None]
  - MUSCLE SPASMS [None]
  - PAIN [None]
  - POSTURE ABNORMAL [None]
